FAERS Safety Report 6568060-X (Version None)
Quarter: 2010Q1

REPORT INFORMATION
  Report Type: 
  Country: None (occurrence: None)
  Receive Date: 20100203
  Receipt Date: 20100119
  Transmission Date: 20100710
  Serious: Yes (Hospitalization)
  Sender: FDA-Public Use
  Company Number: US-SOLVAY-00210000504

PATIENT
  Age: 16339 Day
  Sex: Male
  Weight: 109.09 kg

DRUGS (6)
  1. LISINOPRIL [Concomitant]
     Indication: HYPERTENSION
     Dosage: DAILY DOSE: 10 MILLIGRAM(S)
     Route: 065
  2. ANDROGEL [Suspect]
     Indication: DRUG USE FOR UNKNOWN INDICATION
     Dosage: DAILY DOSE:  UNKNOWN
     Route: 062
     Dates: start: 20090701, end: 20090929
  3. ANDROGEL [Suspect]
     Dosage: DAILY DOSE:  UNKNOWN
     Route: 062
     Dates: start: 20091001, end: 20091001
  4. NEXIUM [Concomitant]
     Indication: GASTROOESOPHAGEAL REFLUX DISEASE
     Dosage: DAILY DOSE: 40 MILLIGRAM(S)
     Route: 065
  5. CLARITIN [Concomitant]
     Indication: DRUG USE FOR UNKNOWN INDICATION
     Dosage: DAILY DOSE:  UNKNOWN, OVER THE COUNTER
     Route: 065
  6. GLUCOSAMINE [Concomitant]
     Indication: ARTHROPATHY
     Dosage: DAILY DOSE:  UNKNOWN, OVER THE COUNTER
     Route: 065

REACTIONS (1)
  - PANCREATITIS [None]
